FAERS Safety Report 20941948 (Version 2)
Quarter: 2022Q2

REPORT INFORMATION
  Report Type: Spontaneous
  Country: UA (occurrence: UA)
  Receive Date: 20220610
  Receipt Date: 20220621
  Transmission Date: 20220721
  Serious: No
  Sender: FDA-Public Use
  Company Number: UA-NOVARTISPH-NVSC2022UA130500

PATIENT

DRUGS (10)
  1. OXALIPLATIN [Suspect]
     Active Substance: OXALIPLATIN
     Indication: Metastatic gastric cancer
     Dosage: 85 MG/M2, Q2H,SLOWLY -1ST STAGE
     Route: 042
  2. OXALIPLATIN [Suspect]
     Active Substance: OXALIPLATIN
     Dosage: 85 MG/M2, Q2H,SLOWLY- 2ND  STAGE
     Route: 042
  3. CISPLATIN [Suspect]
     Active Substance: CISPLATIN
     Indication: Metastatic gastric cancer
     Dosage: 50 MG/M2,DISSOLVED IN 4?6 L OF PERFUSATE
     Route: 033
  4. DOXORUBICIN [Suspect]
     Active Substance: DOXORUBICIN
     Indication: Metastatic gastric cancer
     Dosage: 15 MG/M2, DISSOLVED IN 4?6 L OF PERFUSATE
     Route: 033
  5. FLUOROURACIL [Concomitant]
     Active Substance: FLUOROURACIL
     Indication: Metastatic gastric cancer
     Dosage: 2600 MG/M2, Q24H,SLOWLY , 1ST STAGE
     Route: 042
  6. FLUOROURACIL [Concomitant]
     Active Substance: FLUOROURACIL
     Dosage: 2600 MG/M2, Q24H,SLOWLY , 2ND STAGE
     Route: 042
  7. DOCETAXEL [Concomitant]
     Active Substance: DOCETAXEL
     Indication: Metastatic gastric cancer
     Dosage: 50 MG/M2, Q2W,DRIP WITH REPETITION EVERY TWO WEEKS-1ST STAGE
     Route: 042
  8. DOCETAXEL [Concomitant]
     Active Substance: DOCETAXEL
     Dosage: 50 MG/M2, Q2W,DRIP WITH REPETITION EVERY TWO WEEKS-2ND STAGE
     Route: 042
  9. LEUCOVORIN [Concomitant]
     Active Substance: LEUCOVORIN
     Indication: Metastatic gastric cancer
     Dosage: 200 MG/M2, Q2H,SLOWLY - 1ST STAGE
     Route: 042
  10. LEUCOVORIN [Concomitant]
     Active Substance: LEUCOVORIN
     Dosage: 200 MG/M2, Q2H,SLOWLY - 2ND STAGE
     Route: 042

REACTIONS (2)
  - Product use in unapproved indication [Unknown]
  - Product use issue [Unknown]
